FAERS Safety Report 5466378-5 (Version None)
Quarter: 2007Q3

REPORT INFORMATION
  Report Type: 
  Country: None (occurrence: None)
  Receive Date: 20070920
  Receipt Date: 20070912
  Transmission Date: 20080115
  Serious: Yes (Death)
  Sender: FDA-Public Use
  Company Number: 2007330974

PATIENT
  Age: 47 Year
  Sex: Female

DRUGS (2)
  1. BENADRYL [Suspect]
     Indication: BLADDER DISORDER
     Dosage: 50 MG QD,ORAL
     Route: 048
     Dates: end: 20070512
  2. CELEXA [Suspect]
     Indication: DEPRESSION
     Dosage: 10 MG QD; 20 MG QD; 20 MG BID,ORAL
     Route: 048
     Dates: start: 20060101, end: 20070512

REACTIONS (3)
  - COMPLETED SUICIDE [None]
  - DRUG TOXICITY [None]
  - MULTIPLE DRUG OVERDOSE INTENTIONAL [None]
